FAERS Safety Report 20830179 (Version 4)
Quarter: 2022Q2

REPORT INFORMATION
  Report Type: Report from Study
  Country: US (occurrence: US)
  Receive Date: 20220514
  Receipt Date: 20220530
  Transmission Date: 20220721
  Serious: Yes (Death, Hospitalization, Other)
  Sender: FDA-Public Use
  Company Number: US-NOVARTISPH-NVSC2021US283033

PATIENT
  Age: 0 Year
  Sex: Male
  Weight: 11 kg

DRUGS (73)
  1. ZOLGENSMA [Suspect]
     Active Substance: ONASEMNOGENE ABEPARVOVEC-XIOI
     Indication: Spinal muscular atrophy
     Dosage: 38.5 ML, ONCE/SINGLE
     Route: 042
     Dates: start: 20200916, end: 20200916
  2. PROVENTIL [Concomitant]
     Active Substance: ALBUTEROL
     Indication: Product used for unknown indication
     Dosage: 0.5 ML, (FOUR TIMES DAILY)
     Route: 065
     Dates: start: 20201028
  3. PROVENTIL [Concomitant]
     Active Substance: ALBUTEROL
     Dosage: 2.5 MG, Q4H (0.5%, 2.5 MG/0.5 ML)
     Route: 065
     Dates: start: 20211118, end: 20211123
  4. PROVENTIL [Concomitant]
     Active Substance: ALBUTEROL
     Dosage: 2.5 MG, Q4H (0.5%, 2.5 MG/0.5 ML)
     Route: 065
     Dates: start: 20211102, end: 20211110
  5. PROVENTIL [Concomitant]
     Active Substance: ALBUTEROL
     Dosage: 2.5 MG, Q4H (0.5%, 2.5 MG/0.5 ML)
     Route: 065
     Dates: start: 20211110, end: 20211112
  6. PROVENTIL [Concomitant]
     Active Substance: ALBUTEROL
     Dosage: 2.5 MG, Q4H (0.5%, 2.5 MG/0.5 ML)
     Route: 065
     Dates: start: 20211112, end: 20211114
  7. PROVENTIL [Concomitant]
     Active Substance: ALBUTEROL
     Dosage: 2.5 MG, Q4H (0.5%, 2.5 MG/0.5 ML)
     Route: 065
     Dates: start: 20211114, end: 20211116
  8. PROVENTIL [Concomitant]
     Active Substance: ALBUTEROL
     Dosage: 2.5 MG, Q4H AS NEEDED (0..83%, 2.5 MG/3ML)
     Route: 065
     Dates: start: 20211116, end: 20211123
  9. PROVENTIL [Concomitant]
     Active Substance: ALBUTEROL
     Dosage: 2.5 MG, Q4H (0.5%, 2.5 MG/0.5 ML)
     Route: 065
     Dates: start: 20211116, end: 20211117
  10. PROVENTIL [Concomitant]
     Active Substance: ALBUTEROL
     Dosage: 2.5 MG, Q3H (0.5%, 2.5 MG/0.5 ML)
     Route: 065
     Dates: start: 20211117, end: 20211118
  11. PROVENTIL [Concomitant]
     Active Substance: ALBUTEROL
     Dosage: 2.5 MG, Q3H (0.5%, 2.5 MG/0.5 ML)
     Route: 065
     Dates: start: 20211117, end: 20211117
  12. PROVENTIL [Concomitant]
     Active Substance: ALBUTEROL
     Dosage: 2.5 MG, Q4H
     Route: 065
     Dates: start: 20211205
  13. PROVENTIL [Concomitant]
     Active Substance: ALBUTEROL
     Dosage: 2.5 MG, Q4H
     Route: 065
     Dates: start: 20211217
  14. PROVENTIL [Concomitant]
     Active Substance: ALBUTEROL
     Dosage: 2.5 MG, BID
     Route: 065
     Dates: start: 20211218
  15. PROVENTIL [Concomitant]
     Active Substance: ALBUTEROL
     Dosage: 2.5 MG, BID (2.5 )
     Route: 055
  16. SODIUM CHLORIDE [Concomitant]
     Active Substance: SODIUM CHLORIDE
     Indication: Product used for unknown indication
     Dosage: 4 ML (INHALE 4ML INTO LUNGS 2 TIMES DAILY)
     Route: 065
     Dates: start: 20201028
  17. SODIUM CHLORIDE [Concomitant]
     Active Substance: SODIUM CHLORIDE
     Dosage: 4 ML, Q8H
     Route: 065
     Dates: start: 20211102, end: 20211102
  18. SODIUM CHLORIDE [Concomitant]
     Active Substance: SODIUM CHLORIDE
     Dosage: 4 ML, Q8H
     Route: 065
     Dates: start: 20211102, end: 20211104
  19. SODIUM CHLORIDE [Concomitant]
     Active Substance: SODIUM CHLORIDE
     Dosage: 4 ML, Q2H AS NEEDED
     Route: 065
     Dates: start: 20211104, end: 20211123
  20. SODIUM CHLORIDE [Concomitant]
     Active Substance: SODIUM CHLORIDE
     Dosage: 4 ML, Q4H
     Route: 065
     Dates: start: 20211104, end: 20211110
  21. SODIUM CHLORIDE [Concomitant]
     Active Substance: SODIUM CHLORIDE
     Dosage: 4 ML, Q6H
     Route: 065
     Dates: start: 20211110, end: 20211112
  22. SODIUM CHLORIDE [Concomitant]
     Active Substance: SODIUM CHLORIDE
     Dosage: 4 ML, Q4H
     Route: 065
     Dates: start: 20211112, end: 20211114
  23. SODIUM CHLORIDE [Concomitant]
     Active Substance: SODIUM CHLORIDE
     Dosage: 4 ML, Q3H
     Route: 065
     Dates: start: 20211114, end: 20211116
  24. SODIUM CHLORIDE [Concomitant]
     Active Substance: SODIUM CHLORIDE
     Dosage: 4 ML, Q4H
     Route: 065
     Dates: start: 20211116, end: 20211117
  25. SODIUM CHLORIDE [Concomitant]
     Active Substance: SODIUM CHLORIDE
     Dosage: 4 ML, Q3H
     Route: 065
     Dates: start: 20211117, end: 20211117
  26. SODIUM CHLORIDE [Concomitant]
     Active Substance: SODIUM CHLORIDE
     Dosage: 4 ML, Q3H
     Route: 065
     Dates: start: 20211117, end: 20211118
  27. SODIUM CHLORIDE [Concomitant]
     Active Substance: SODIUM CHLORIDE
     Dosage: 4 ML, Q4H
     Route: 065
     Dates: start: 20211117, end: 20211123
  28. SODIUM CHLORIDE [Concomitant]
     Active Substance: SODIUM CHLORIDE
     Dosage: 4 ML, BID (0.331 ML/KG)
     Route: 065
     Dates: start: 20211205
  29. SODIUM CHLORIDE [Concomitant]
     Active Substance: SODIUM CHLORIDE
     Dosage: 4 ML, BID
     Route: 065
     Dates: start: 20211217
  30. SODIUM CHLORIDE [Concomitant]
     Active Substance: SODIUM CHLORIDE
     Dosage: 4 ML
     Route: 065
     Dates: start: 20211218
  31. SODIUM CHLORIDE [Concomitant]
     Active Substance: SODIUM CHLORIDE
     Dosage: 1-3 , Q4H
     Route: 055
  32. ACETYLCYSTEINE [Concomitant]
     Active Substance: ACETYLCYSTEINE
     Indication: Product used for unknown indication
     Dosage: 3 ML, BID (200 MG/ML (20 )
     Route: 055
     Dates: start: 20200312
  33. ACETYLCYSTEINE [Concomitant]
     Active Substance: ACETYLCYSTEINE
     Dosage: 600 MG, Q8H (200 MG/ML, 20%)
     Route: 065
     Dates: start: 20211102, end: 20211104
  34. ACETYLCYSTEINE [Concomitant]
     Active Substance: ACETYLCYSTEINE
     Dosage: 600 MG, Q4H (200 MG/ML (20%)
     Route: 065
     Dates: start: 20211104, end: 20211104
  35. ACETYLCYSTEINE [Concomitant]
     Active Substance: ACETYLCYSTEINE
     Dosage: 600 MG, Q4H (200 MG, 20%)
     Route: 065
     Dates: start: 20211104, end: 20211109
  36. ACETYLCYSTEINE [Concomitant]
     Active Substance: ACETYLCYSTEINE
     Dosage: 600 MG (FOUR TIMES DAILY) (200 MG/ML, 20%)
     Route: 065
     Dates: start: 20211110, end: 20211110
  37. ACETYLCYSTEINE [Concomitant]
     Active Substance: ACETYLCYSTEINE
     Dosage: 600 MG, Q6H (200 MG/ML, 20%)
     Route: 065
     Dates: start: 20211110, end: 20211112
  38. ACETYLCYSTEINE [Concomitant]
     Active Substance: ACETYLCYSTEINE
     Dosage: 300 MG, BID (100 MG/ML/ 10% SOLUTION) (24.8 MG/KG= 3ML)
     Route: 065
     Dates: start: 20211205
  39. ACETYLCYSTEINE [Concomitant]
     Active Substance: ACETYLCYSTEINE
     Dosage: 300 MG
     Route: 065
     Dates: start: 20211217
  40. ACETYLCYSTEINE [Concomitant]
     Active Substance: ACETYLCYSTEINE
     Dosage: 300 MG
     Route: 065
     Dates: start: 20211218
  41. PREDNISOLONE SODIUM PHOSPHATE [Concomitant]
     Active Substance: PREDNISOLONE SODIUM PHOSPHATE
     Indication: Product used for unknown indication
     Dosage: 23.7 MG, QD
     Route: 065
     Dates: start: 20211102, end: 20211103
  42. PREDNISOLONE SODIUM PHOSPHATE [Concomitant]
     Active Substance: PREDNISOLONE SODIUM PHOSPHATE
     Dosage: 23.7 MG, QD
     Route: 065
     Dates: start: 20211104, end: 20211104
  43. PREDNISOLONE SODIUM PHOSPHATE [Concomitant]
     Active Substance: PREDNISOLONE SODIUM PHOSPHATE
     Dosage: 23.7 MG, QD
     Route: 065
     Dates: start: 20211105, end: 20211106
  44. PREDNISOLONE SODIUM PHOSPHATE [Concomitant]
     Active Substance: PREDNISOLONE SODIUM PHOSPHATE
     Dosage: 23.7 MG, QD
     Route: 065
     Dates: start: 20211106, end: 20211106
  45. PREDNISOLONE SODIUM PHOSPHATE [Concomitant]
     Active Substance: PREDNISOLONE SODIUM PHOSPHATE
     Dosage: 23.7 MG, QD
     Route: 065
     Dates: start: 20211107, end: 20211108
  46. LACTATED RINGERS SOLUTION [Concomitant]
     Active Substance: CALCIUM CHLORIDE\POTASSIUM CHLORIDE\SODIUM CHLORIDE\SODIUM LACTATE
     Indication: Product used for unknown indication
     Dosage: 236 ML, ONCE/SINGLE
     Route: 065
     Dates: start: 20211105, end: 20211105
  47. LACTATED RINGERS SOLUTION [Concomitant]
     Active Substance: CALCIUM CHLORIDE\POTASSIUM CHLORIDE\SODIUM CHLORIDE\SODIUM LACTATE
     Dosage: 44 ML/ HR (1000 ML (82.6 ML/KG))
     Route: 065
     Dates: start: 20211205, end: 20211213
  48. BUDESONIDE [Concomitant]
     Active Substance: BUDESONIDE
     Indication: Product used for unknown indication
     Dosage: 0.5 MG, BID (0.5 MG/2ML)
     Route: 065
     Dates: start: 20211104, end: 20211123
  49. BUDESONIDE [Concomitant]
     Active Substance: BUDESONIDE
     Dosage: 0.5 MG, (0.5 MG/2ML)
     Route: 065
     Dates: start: 20201028
  50. BUDESONIDE [Concomitant]
     Active Substance: BUDESONIDE
     Dosage: 0.5 MG, BID (0.5 MG/2ML)
     Route: 065
     Dates: start: 20211205
  51. BUDESONIDE [Concomitant]
     Active Substance: BUDESONIDE
     Dosage: 0.5 MG, TID (0.5 MG/2ML)
     Route: 065
     Dates: start: 20211217
  52. BUDESONIDE [Concomitant]
     Active Substance: BUDESONIDE
     Dosage: 0.5 MG
     Route: 055
  53. MENTHOL [Concomitant]
     Active Substance: MENTHOL
     Indication: Product used for unknown indication
     Dosage: UNK, TID AS NEEDED (0.2%-16.5%)
     Route: 061
     Dates: start: 20211103, end: 20211123
  54. ZINC OXIDE [Concomitant]
     Active Substance: ZINC OXIDE
     Indication: Product used for unknown indication
     Dosage: UNK, AS NEEDED
     Route: 061
     Dates: start: 20211102, end: 20211123
  55. DEXTROSE [Concomitant]
     Active Substance: DEXTROSE
     Indication: Product used for unknown indication
     Dosage: UNK (5%-NACL, 0.9%-KCL, 20 MEQ/L, CONTINUOUS)
     Route: 042
     Dates: start: 20211102, end: 20211110
  56. DEXTROSE [Concomitant]
     Active Substance: DEXTROSE
     Dosage: UNK (5%-NACL, 0.9%-KCL, 20 MEQ/L, CONTINUOUS)
     Route: 042
     Dates: start: 20211102, end: 20211102
  57. DEXTROSE [Concomitant]
     Active Substance: DEXTROSE
     Dosage: UNK (5%-NACL, 0.9%-KCL, 20 MEQ/L, CONTINUOUS)
     Route: 042
  58. LIDOCAINE [Concomitant]
     Active Substance: LIDOCAINE
     Indication: Product used for unknown indication
     Dosage: UNK (AS NEEDED)
     Route: 065
     Dates: start: 20211102, end: 20211123
  59. LIDOCAINE [Concomitant]
     Active Substance: LIDOCAINE
     Dosage: UNK, PRN (4% CREAM)
     Route: 061
  60. LIDOCAINE [Concomitant]
     Active Substance: LIDOCAINE
     Dosage: UNK, PRN (2%JELLY)
     Route: 061
  61. LIDOCAINE [Concomitant]
     Active Substance: LIDOCAINE
     Dosage: UNK, PRN (2%JELLY)
     Route: 066
  62. AZITHROMYCIN [Concomitant]
     Active Substance: AZITHROMYCIN
     Indication: Product used for unknown indication
     Dosage: 115 MG
     Route: 042
  63. IBUPROFEN [Concomitant]
     Active Substance: IBUPROFEN
     Indication: Product used for unknown indication
     Dosage: 10 MG/KG (PRN, FEEDING TUBE)
     Route: 065
  64. BISACODYL [Concomitant]
     Active Substance: BISACODYL
     Indication: Product used for unknown indication
     Dosage: 5 MG, QD (PRN)
     Route: 054
  65. CREON [Concomitant]
     Active Substance: PANCRELIPASE AMYLASE\PANCRELIPASE LIPASE\PANCRELIPASE PROTEASE
     Indication: Product used for unknown indication
     Dosage: UNK (OPEN THE LIPASE-PROTEASE-AMYLASE 6000-19000-30000 UNIT (AKA CREON) CAPSULE AND MIX THE CONTENTS
     Route: 065
  66. TYLENOL [Concomitant]
     Active Substance: ACETAMINOPHEN
     Indication: Product used for unknown indication
     Dosage: 12.5 MG/KG, Q4H (PRN,FEEDING TUBE)
     Route: 048
  67. TRIAMCINOLONE ACETONIDE [Concomitant]
     Active Substance: TRIAMCINOLONE ACETONIDE
     Indication: Excessive granulation tissue
     Dosage: UNK (APPLY THIN FILM TO GRANULATION TISSUE ONLY. APPLY 3 TIMES A DAY FOR 2 WEEKS MAXIMUM.)
     Route: 065
  68. SODIUM BICARBONATE [Concomitant]
     Active Substance: SODIUM BICARBONATE
     Indication: Product used for unknown indication
     Dosage: UNK (OPEN THE LIPASE-PROTEASE-AMYLASE 6000-19000-30000 UNIT (AKA CREON) CAPSULE AND MIX THE CONTENTS
     Route: 065
  69. TRIAMCINOLONE [Concomitant]
     Active Substance: TRIAMCINOLONE
     Indication: Excessive granulation tissue
     Dosage: UNK, (APPLY 3 TIMES A DAY FOR 2 WEEKS MAXIMUM, REPEAT AS NEEDED AFTER 1 WEEK BREAK)
     Route: 065
     Dates: start: 20210714
  70. SALINE [Concomitant]
     Active Substance: SODIUM CHLORIDE
     Indication: Product used for unknown indication
     Dosage: UNK
     Route: 065
  71. GLYCERIN [Concomitant]
     Active Substance: GLYCERIN
     Indication: Product used for unknown indication
     Dosage: UNK
     Route: 054
     Dates: start: 20201102
  72. POLYETHYLENE GLYCOLS [Concomitant]
     Active Substance: POLYETHYLENE GLYCOLS
     Indication: Product used for unknown indication
     Dosage: 4.25 G, QD (FEEDING TUBE)
     Route: 065
  73. SENNA LEAF [Concomitant]
     Active Substance: SENNA LEAF
     Indication: Product used for unknown indication
     Dosage: 2.5 ML, BID (PRN)
     Route: 065

REACTIONS (26)
  - Respiratory failure [Recovered/Resolved]
  - Pneumonia viral [Recovered/Resolved]
  - Pneumonia [Unknown]
  - Condition aggravated [Unknown]
  - Pneumonia aspiration [Unknown]
  - Respiratory distress [Not Recovered/Not Resolved]
  - Bronchiolitis [Unknown]
  - Hypoxia [Unknown]
  - Sepsis [Unknown]
  - Tachypnoea [Unknown]
  - Hypoventilation [Unknown]
  - Neuromyopathy [Unknown]
  - Respiratory syncytial virus bronchiolitis [Unknown]
  - Immunodeficiency [Unknown]
  - Tachycardia [Unknown]
  - Hepatotoxicity [Unknown]
  - Oxygen saturation decreased [Unknown]
  - Rhinovirus infection [Unknown]
  - Atelectasis [Unknown]
  - Nasal flaring [Unknown]
  - Pyrexia [Unknown]
  - Muscular weakness [Unknown]
  - Cough [Unknown]
  - Lung opacity [Unknown]
  - Chronic respiratory disease [Unknown]
  - Vomiting [Unknown]

NARRATIVE: CASE EVENT DATE: 20200917
